FAERS Safety Report 5280132-9 (Version None)
Quarter: 2007Q1

REPORT INFORMATION
  Report Type: 
  Country: None (occurrence: None)
  Receive Date: 20061215
  Receipt Date: 20060914
  Transmission Date: 20070707
  Serious: Yes (Other)
  Sender: FDA-Public Use
  Company Number: HQWYE736115SEP06

PATIENT
  Sex: Female

DRUGS (1)
  1. EFFEXOR XR [Suspect]
     Dosage: ^TOOK ALMOST A WHOLE BOTTLE OF EFFEXOR XR 75MG^ OVERDOSE AMOUNT, ORAL
     Route: 048
     Dates: start: 20060914, end: 20060914

REACTIONS (1)
  - INTENTIONAL OVERDOSE [None]
